FAERS Safety Report 4547161-1 (Version None)
Quarter: 2005Q1

REPORT INFORMATION
  Report Type: 
  Country: None (occurrence: None)
  Receive Date: 20050105
  Receipt Date: 20041216
  Transmission Date: 20050727
  Serious: Yes (Other)
  Sender: FDA-Public Use
  Company Number: USA041286405

PATIENT
  Age: 69 Year
  Sex: Male

DRUGS (2)
  1. ALIMTA [Suspect]
     Indication: MESOTHELIOMA
     Dosage: 500 MG/M2
     Dates: start: 20040901
  2. CISPLATIN [Concomitant]

REACTIONS (4)
  - BLOOD ELECTROLYTES ABNORMAL [None]
  - RASH [None]
  - TUMOUR LYSIS SYNDROME [None]
  - URINE OUTPUT DECREASED [None]
